FAERS Safety Report 5525820-1 (Version None)
Quarter: 2007Q4

REPORT INFORMATION
  Report Type: 
  Country: None (occurrence: None)
  Receive Date: 20071126
  Receipt Date: 20071114
  Transmission Date: 20080405
  Serious: Yes (Other)
  Sender: FDA-Public Use
  Company Number: US-PFIZER INC-2007080178

PATIENT
  Age: 47 Year
  Sex: Female
  Weight: 54 kg

DRUGS (3)
  1. CHANTIX [Suspect]
     Indication: SMOKING CESSATION THERAPY
  2. VITAMINS [Concomitant]
  3. FIORICET [Concomitant]
     Indication: HEADACHE

REACTIONS (4)
  - ANXIETY [None]
  - DISCOMFORT [None]
  - MIDDLE INSOMNIA [None]
  - MUSCLE SPASMS [None]
